FAERS Safety Report 5919982-1 (Version None)
Quarter: 2008Q4

REPORT INFORMATION
  Report Type: 
  Country: None (occurrence: None)
  Receive Date: 20081014
  Receipt Date: 20081003
  Transmission Date: 20090506
  Serious: Yes (Other)
  Sender: FDA-Public Use
  Company Number: 2008SP020311

PATIENT
  Age: 47 Year
  Sex: Male
  Weight: 81.6475 kg

DRUGS (4)
  1. INTRON A [Suspect]
     Indication: HEPATITIS C
  2. PEG-INTRON [Suspect]
     Indication: HEPATITIS C
     Dosage: SC
     Route: 058
  3. RIBAVIRIN [Suspect]
     Indication: HEPATITIS C
     Dosage: PO
     Route: 048
  4. PEGASYS [Suspect]
     Indication: HEPATITIS C

REACTIONS (6)
  - CHILLS [None]
  - HYPERHIDROSIS [None]
  - MIGRAINE [None]
  - PYREXIA [None]
  - THYROID DISORDER [None]
  - WEIGHT DECREASED [None]
